FAERS Safety Report 17397175 (Version 1)
Quarter: 2020Q1

REPORT INFORMATION
  Report Type: Other
  Country: FR (occurrence: FR)
  Receive Date: 20200210
  Receipt Date: 20200210
  Transmission Date: 20200409
  Serious: Yes (Life-Threatening, Hospitalization, Disabling, Other)
  Sender: FDA-Public Use
  Company Number: FR-COVIS PHARMA B.V.-2020COV00056

PATIENT
  Age: 37 Year
  Sex: Female

DRUGS (22)
  1. TRIMEBUTINE [Suspect]
     Active Substance: TRIMEBUTINE
     Dosage: UNK
     Dates: start: 20180326
  2. METRONIDAZOL [Suspect]
     Active Substance: METRONIDAZOLE
     Dosage: UNK
     Dates: start: 20180326
  3. SULBUTIAMINE [Suspect]
     Active Substance: SULBUTIAMINE
     Dosage: UNK
     Dates: start: 20180326
  4. ALPRAZOLAM. [Suspect]
     Active Substance: ALPRAZOLAM
     Dosage: UNK
     Dates: start: 20180320
  5. ZINC. [Suspect]
     Active Substance: ZINC
     Dosage: UNK
     Dates: start: 20180511
  6. IBUPROFENE EG [Suspect]
     Active Substance: IBUPROFEN SODIUM
     Dosage: UNK
  7. ALVERINI CITRAS, SIMETICON [Suspect]
     Active Substance: ALVERINE CITRATE\DIMETHICONE
     Dosage: UNK
     Dates: start: 20180320
  8. CARBON MEDICINALIS, SACCHARMOYCES CEREVISIAL [Suspect]
     Active Substance: ACTIVATED CHARCOAL\SACCHAROMYCES CEREVISIAE
     Dosage: UNK
     Dates: start: 20180320
  9. TIXOCORTOL [Suspect]
     Active Substance: TIXOCORTOL PIVALATE
     Dosage: UNK
     Dates: start: 20180511
  10. LACTOBACILLUS ACIDOPHILUS [Suspect]
     Active Substance: LACTOBACILLUS ACIDOPHILUS
     Dosage: UNK
     Dates: start: 20180403
  11. PARACETAMOL [Suspect]
     Active Substance: ACETAMINOPHEN
     Dosage: UNK
     Dates: start: 20180707
  12. DEXTROMETHORPHANE [Suspect]
     Active Substance: DEXTROMETHORPHAN
     Dosage: UNK
     Dates: start: 20180630
  13. OMEPRAZOLE MAGNESIUM. [Suspect]
     Active Substance: OMEPRAZOLE MAGNESIUM
     Dosage: UNK
     Route: 048
     Dates: start: 20180108
  14. METHOCARBAMOL. [Suspect]
     Active Substance: METHOCARBAMOL
     Dosage: UNK
     Dates: start: 20180412
  15. ERYTHROMYCINE [Suspect]
     Active Substance: ERYTHROMYCIN
     Dosage: UNK
     Dates: start: 20180511
  16. PARACETAMOL [Suspect]
     Active Substance: ACETAMINOPHEN
     Dosage: UNK
     Dates: start: 20180412
  17. CODEINE [Suspect]
     Active Substance: CODEINE
     Indication: COUGH
     Dosage: UNK
     Dates: start: 20180707
  18. BECLOMETHASONE AQUEOUS [Suspect]
     Active Substance: BECLOMETHASONE DIPROPIONATE
     Dosage: UNK
     Dates: start: 20180630
  19. NICOTIN [Suspect]
     Active Substance: NICOTINE
     Dosage: UNK
     Dates: start: 20180108
  20. SULFAMETHOXAZOLE W/TRIMETHOPRIM [Suspect]
     Active Substance: SULFAMETHOXAZOLE\TRIMETHOPRIM
     Dosage: UNK
     Dates: start: 20180328
  21. NALTREXON [Suspect]
     Active Substance: NALTREXONE
     Dosage: UNK
     Dates: start: 20180320
  22. TIXOCORTOL [Suspect]
     Active Substance: TIXOCORTOL PIVALATE
     Dosage: UNK
     Dates: start: 20180630

REACTIONS (5)
  - Necrosis ischaemic [Recovered/Resolved]
  - Loss of consciousness [Recovered/Resolved]
  - Septic shock [Recovered/Resolved]
  - Pneumonia streptococcal [Recovered/Resolved]
  - Beta haemolytic streptococcal infection [Recovered/Resolved]
